FAERS Safety Report 18137287 (Version 1)
Quarter: 2020Q3

REPORT INFORMATION
  Report Type: Spontaneous
  Country: DE (occurrence: DE)
  Receive Date: 20200812
  Receipt Date: 20200812
  Transmission Date: 20201103
  Serious: Yes (Other)
  Sender: FDA-Public Use
  Company Number: DE-TEVA-2020-DE-1813098

PATIENT
  Age: 47 Year
  Sex: Female

DRUGS (1)
  1. AMOXICILLIN. [Suspect]
     Active Substance: AMOXICILLIN
     Indication: GINGIVITIS
     Dosage: THREE TIMES A DAY IN THE MORNING AT NOON IN THE EVENING
     Dates: start: 20200717, end: 20200723

REACTIONS (4)
  - Feeling hot [Recovering/Resolving]
  - Erythema [Recovering/Resolving]
  - Throat tightness [Recovering/Resolving]
  - Dysphagia [Recovering/Resolving]

NARRATIVE: CASE EVENT DATE: 20200717
